FAERS Safety Report 6223098-7 (Version None)
Quarter: 2009Q2

REPORT INFORMATION
  Report Type: 
  Country: None (occurrence: None)
  Receive Date: 20090609
  Receipt Date: 20090526
  Transmission Date: 20091009
  Serious: Yes (Hospitalization)
  Sender: FDA-Public Use
  Company Number: 1000006607

PATIENT
  Age: 89 Year
  Sex: Female

DRUGS (11)
  1. ESCITALOPRAM [Suspect]
     Dosage: 20 MG (20 MG, 1 IN 1 D), ORAL
     Route: 048
     Dates: start: 20081031
  2. KARDEGIC (POWDER) [Suspect]
     Dosage: 75 MG (75 MG, 1 IN 1 D), ORAL
     Route: 048
     Dates: start: 20080912
  3. NITRODERM [Concomitant]
  4. LASIX [Concomitant]
  5. IMOVANE (TABLETS) [Concomitant]
  6. MODOPAR (CAPSULES) [Concomitant]
  7. CARDENSIEL [Concomitant]
  8. CLONAZEPAM [Concomitant]
  9. LOXEN (TABLETS) [Concomitant]
  10. ALUMINUM HYDROXIDE AND MAGNESIUM TRISILICATE [Concomitant]
  11. EFFERALGAN (TABLETS) [Concomitant]

REACTIONS (3)
  - ANAEMIA [None]
  - CREATININE RENAL CLEARANCE DECREASED [None]
  - GASTRIC ULCER HAEMORRHAGE [None]
